FAERS Safety Report 7448973-7 (Version None)
Quarter: 2011Q2

REPORT INFORMATION
  Report Type: 
  Country: None (occurrence: None)
  Receive Date: 20110429
  Receipt Date: 20090826
  Transmission Date: 20111010
  Serious: Yes (Hospitalization, Other)
  Sender: FDA-Public Use
  Company Number: DE-GENENTECH-317772

PATIENT
  Sex: Male

DRUGS (2)
  1. LUCENTIS [Suspect]
     Indication: MACULAR DEGENERATION
     Dosage: UNK
     Route: 031
     Dates: start: 20090107
  2. SIMVAHEXAL [Suspect]
     Indication: PRODUCT USED FOR UNKNOWN INDICATION

REACTIONS (12)
  - ASTHMA [None]
  - THROAT IRRITATION [None]
  - BLOOD PRESSURE INCREASED [None]
  - VISUAL ACUITY REDUCED [None]
  - HEAD INJURY [None]
  - CEREBROVASCULAR ACCIDENT [None]
  - CHOROIDAL NEOVASCULARISATION [None]
  - FEELING ABNORMAL [None]
  - VISUAL ACUITY TESTS ABNORMAL [None]
  - HEART RATE INCREASED [None]
  - VISUAL IMPAIRMENT [None]
  - FALL [None]
